FAERS Safety Report 8528187 (Version 3)
Quarter: 2013Q2

REPORT INFORMATION
  Report Type: Spontaneous
  Country: AR (occurrence: AR)
  Receive Date: 20120424
  Receipt Date: 20130417
  Transmission Date: 20140414
  Serious: Yes (Other)
  Sender: FDA-Public Use
  Company Number: AR-ROCHE-1061985

PATIENT
  Age: 63 Year
  Sex: Female

DRUGS (3)
  1. XOLAIR [Suspect]
     Indication: ASTHMA
     Dosage: QMO
     Route: 058
     Dates: end: 201201
  2. XOLAIR [Suspect]
     Dosage: SECOND DOSE
     Route: 065
     Dates: start: 201112, end: 201201
  3. DELTISONE [Concomitant]
     Route: 065

REACTIONS (9)
  - Asthma [Not Recovered/Not Resolved]
  - Nasopharyngitis [Recovering/Resolving]
  - Cough [Recovering/Resolving]
  - Somnolence [Recovering/Resolving]
  - Osteoarthritis [Not Recovered/Not Resolved]
  - Agitation [Not Recovered/Not Resolved]
  - Dyspnoea [Not Recovered/Not Resolved]
  - Fatigue [Not Recovered/Not Resolved]
  - Hypersensitivity [Not Recovered/Not Resolved]
